FAERS Safety Report 6213320-5 (Version None)
Quarter: 2009Q2

REPORT INFORMATION
  Report Type: 
  Country: None (occurrence: None)
  Receive Date: 20090601
  Receipt Date: 20090601
  Transmission Date: 20091009
  Serious: Yes (Hospitalization, Other)
  Sender: FDA-Public Use
  Company Number: None

PATIENT
  Sex: Female
  Weight: 61.2356 kg

DRUGS (3)
  1. BUPROPION HCL [Suspect]
     Indication: DEPRESSION
     Dosage: 3 TABLETS EVERY MORNING PO
     Route: 048
     Dates: start: 20090301, end: 20090321
  2. LAMICITAL [Concomitant]
  3. PROVIGIL [Concomitant]

REACTIONS (2)
  - GRAND MAL CONVULSION [None]
  - PRODUCT SUBSTITUTION ISSUE [None]
